FAERS Safety Report 7880768-2 (Version None)
Quarter: 2011Q4

REPORT INFORMATION
  Report Type: 
  Country: None (occurrence: None)
  Receive Date: 20111101
  Receipt Date: 20111017
  Transmission Date: 20120403
  Serious: Yes (Hospitalization)
  Sender: FDA-Public Use
  Company Number: JP-WATSON-2011-17515

PATIENT
  Age: 50 Year
  Sex: Male

DRUGS (6)
  1. SELEGILINE HYDROCHLORIDE (UNKNOWN) [Suspect]
     Indication: DEPRESSION
     Dosage: 195 MG, SINGLE
     Dates: start: 20101101
  2. VALPROATE SODIUM [Suspect]
     Indication: PRODUCT USED FOR UNKNOWN INDICATION
     Dosage: 16000 MG, SINGLE
  3. NITRAZEPAM [Suspect]
     Indication: PRODUCT USED FOR UNKNOWN INDICATION
     Dosage: 70 MG, SINGLE
  4. SELEGILINE HYDROCHLORIDE (UNKNOWN) [Suspect]
     Indication: SUICIDE ATTEMPT
     Dosage: 10 MG, DAILY
     Dates: start: 20050501
  5. TRAZODONE HYDROCHLORIDE [Suspect]
     Indication: PRODUCT USED FOR UNKNOWN INDICATION
     Dosage: 2250 MG, SINGLE
  6. CARBAMAZEPINE [Suspect]
     Indication: PRODUCT USED FOR UNKNOWN INDICATION
     Dosage: 8600 MG, SINGLE

REACTIONS (5)
  - HALLUCINATION, VISUAL [None]
  - HYPERTENSION [None]
  - GRAND MAL CONVULSION [None]
  - SUICIDE ATTEMPT [None]
  - MULTIPLE DRUG OVERDOSE [None]
